FAERS Safety Report 11967343 (Version 1)
Quarter: 2016Q1

REPORT INFORMATION
  Report Type: Spontaneous
  Country: FR (occurrence: FR)
  Receive Date: 20160127
  Receipt Date: 20160127
  Transmission Date: 20160526
  Serious: Yes (Hospitalization)
  Sender: FDA-Public Use
  Company Number: FR-SA-2016SA010422

PATIENT
  Age: 66 Year
  Sex: Male
  Weight: 110 kg

DRUGS (11)
  1. LASILIX [Suspect]
     Active Substance: FUROSEMIDE
     Route: 065
  2. FLUDEX [Suspect]
     Active Substance: INDAPAMIDE
     Route: 048
     Dates: end: 20150517
  3. ENALAPRIL [Suspect]
     Active Substance: ENALAPRIL
     Route: 048
     Dates: end: 20150430
  4. BISOPROLOL HEMIFUMARATE [Concomitant]
     Active Substance: BISOPROLOL FUMARATE
     Route: 048
     Dates: end: 20150517
  5. METFORMIN [Suspect]
     Active Substance: METFORMIN HYDROCHLORIDE
     Route: 048
     Dates: end: 20150430
  6. AMOXICILLINE [Concomitant]
     Active Substance: AMOXICILLIN
     Route: 048
     Dates: end: 20150428
  7. LASILIX [Suspect]
     Active Substance: FUROSEMIDE
     Route: 048
     Dates: end: 20150430
  8. NOVONORM [Concomitant]
     Active Substance: REPAGLINIDE
     Route: 048
  9. SERETIDE [Concomitant]
     Active Substance: FLUTICASONE FUROATE\SALMETEROL XINAFOATE
     Dosage: SERETIDE DISKUS 500/50 MCG/DOSE POWDER FOR INHALATION
     Route: 055
  10. VENTOLINE [Concomitant]
     Active Substance: ALBUTEROL
     Route: 055
  11. INEXIUM [Concomitant]
     Active Substance: ESOMEPRAZOLE
     Dosage: INEXIUM 40 MG GASTRORESISTENT TABLET
     Route: 048

REACTIONS (1)
  - Acute kidney injury [Recovered/Resolved]

NARRATIVE: CASE EVENT DATE: 20150430
